FAERS Safety Report 5268194-6 (Version None)
Quarter: 2007Q1

REPORT INFORMATION
  Report Type: 
  Country: None (occurrence: None)
  Receive Date: 20070314
  Receipt Date: 20070314
  Transmission Date: 20070707
  Serious: Yes (Hospitalization)
  Sender: FDA-Public Use
  Company Number: None

PATIENT
  Sex: Male
  Weight: 69.8539 kg

DRUGS (9)
  1. ERLOTINIB 150MG OSI [Suspect]
     Indication: NON-SMALL CELL LUNG CANCER
     Dosage: 150MG DAILY PO
     Route: 048
     Dates: start: 20061214, end: 20070224
  2. MORPHINE SULFATE [Concomitant]
  3. DILAUDID [Concomitant]
  4. COLACE [Concomitant]
  5. ZOFRAN [Concomitant]
  6. COMPAZINE [Concomitant]
  7. TEMAZEPAM [Concomitant]
  8. NEXIUM [Concomitant]
  9. MEGACE [Concomitant]

REACTIONS (2)
  - ABDOMINAL PAIN [None]
  - DISEASE PROGRESSION [None]
